FAERS Safety Report 10374503 (Version 1)
Quarter: 2014Q3

REPORT INFORMATION
  Report Type: Spontaneous
  Country: AT (occurrence: AT)
  Receive Date: 20140811
  Receipt Date: 20140811
  Transmission Date: 20150326
  Serious: Yes (Other)
  Sender: FDA-Public Use
  Company Number: AT-UCBSA-2014008619

PATIENT
  Age: 56 Year
  Sex: Male

DRUGS (5)
  1. VALPROATE [Suspect]
     Active Substance: VALPROATE SODIUM
     Dosage: UNKNOWN DOSE
  2. RALTEGRAVIR [Concomitant]
     Active Substance: RALTEGRAVIR
     Indication: HIV INFECTION
  3. LAMIVUDINE. [Concomitant]
     Active Substance: LAMIVUDINE
     Indication: HIV INFECTION
  4. LEVETIRACETAM. [Suspect]
     Active Substance: LEVETIRACETAM
     Dosage: UNKNOWN DOSE
  5. ABACAVIR SUCCINATE [Concomitant]
     Active Substance: ABACAVIR SUCCINATE
     Indication: HIV INFECTION

REACTIONS (1)
  - Status epilepticus [Recovered/Resolved]
